FAERS Safety Report 4433667-2 (Version None)
Quarter: 2004Q3

REPORT INFORMATION
  Report Type: 
  Country: None (occurrence: None)
  Receive Date: 20040826
  Receipt Date: 20040527
  Transmission Date: 20050211
  Serious: No
  Sender: FDA-Public Use
  Company Number: US-GLAXOSMITHKLINE-A0512412A

PATIENT
  Age: 79 Year
  Sex: Male

DRUGS (5)
  1. AVODART [Suspect]
     Indication: BENIGN PROSTATIC HYPERPLASIA
     Dosage: .5MG PER DAY
     Route: 048
  2. VERAPAMIL [Concomitant]
  3. COUMADIN [Concomitant]
  4. UROXATRAL [Concomitant]
  5. THYROXINE [Concomitant]

REACTIONS (1)
  - DYSURIA [None]
